FAERS Safety Report 23441853 (Version 7)
Quarter: 2024Q4

REPORT INFORMATION
  Report Type: Spontaneous
  Country: US (occurrence: US)
  Receive Date: 20240125
  Receipt Date: 20241229
  Transmission Date: 20250115
  Serious: Yes (Disabling, Other)
  Sender: AMGEN
  Company Number: US-HORIZON THERAPEUTICS-HZN-2023-008099

PATIENT
  Age: 62 Year
  Sex: Male
  Weight: 94 kg

DRUGS (29)
  1. TEPEZZA [Suspect]
     Active Substance: TEPROTUMUMAB-TRBW
     Indication: Endocrine ophthalmopathy
     Dosage: 940 MILLIGRAM, (FIRST INFUSION)
     Route: 042
     Dates: start: 20210723
  2. TEPEZZA [Suspect]
     Active Substance: TEPROTUMUMAB-TRBW
     Indication: Graves^ disease
     Dosage: 1880 MILLIGRAM, (SECOND INFUSION)
     Route: 042
     Dates: start: 20210813
  3. TEPEZZA [Suspect]
     Active Substance: TEPROTUMUMAB-TRBW
     Dosage: 1880 MILLIGRAM, (THIRD INFUSION)
     Route: 042
     Dates: start: 20210903
  4. TEPEZZA [Suspect]
     Active Substance: TEPROTUMUMAB-TRBW
     Dosage: 1880 MILLIGRAM, (FOURTH INFUSION)
     Route: 042
     Dates: start: 20210924
  5. TEPEZZA [Suspect]
     Active Substance: TEPROTUMUMAB-TRBW
     Dosage: 1880 MILLIGRAM, (FIFTH INFUSION)
     Route: 042
     Dates: start: 20211015
  6. TEPEZZA [Suspect]
     Active Substance: TEPROTUMUMAB-TRBW
     Dosage: 1870 MILLIGRAM, (SIXTH INFUSION)
     Route: 042
     Dates: start: 20211105
  7. TEPEZZA [Suspect]
     Active Substance: TEPROTUMUMAB-TRBW
     Dosage: 1860 MILLIGRAM, (SEVENTH INFUSION)
     Route: 042
     Dates: start: 20211126
  8. TEPEZZA [Suspect]
     Active Substance: TEPROTUMUMAB-TRBW
     Dosage: 1840 MILLIGRAM, (EIGHTH INFUSION)
     Route: 042
     Dates: start: 20211217, end: 20211217
  9. ALLEGRA [Concomitant]
     Active Substance: FEXOFENADINE HYDROCHLORIDE
     Indication: Product used for unknown indication
     Dosage: 180 MG
     Route: 048
  10. LOVASTATIN [Concomitant]
     Active Substance: LOVASTATIN
     Dosage: 20 MILLIGRAM, QD
     Route: 048
     Dates: start: 20230612
  11. MAXALT [Concomitant]
     Active Substance: RIZATRIPTAN BENZOATE
     Indication: Product used for unknown indication
     Dosage: 10 MG
     Route: 048
  12. MUCINEX D [Concomitant]
     Active Substance: GUAIFENESIN\PSEUDOEPHEDRINE HYDROCHLORIDE
     Indication: Product used for unknown indication
     Dosage: 600 MG
     Route: 048
  13. VERAPAMIL [Concomitant]
     Active Substance: VERAPAMIL HYDROCHLORIDE
     Indication: Product used for unknown indication
     Dosage: 240 MILLIGRAM, BID
     Route: 048
     Dates: start: 20230612
  14. LORATADINE [Concomitant]
     Active Substance: LORATADINE
     Dosage: 10 MILLIGRAM, QD
     Route: 048
  15. FLONASE [Concomitant]
     Active Substance: FLUTICASONE PROPIONATE
     Dosage: ONCE A DAY
     Route: 065
  16. RIZATRIPTAN BENZOATE [Concomitant]
     Active Substance: RIZATRIPTAN BENZOATE
     Indication: Migraine
     Dosage: 10 MILLIGRAM
     Route: 065
  17. PREDNISONE [Concomitant]
     Active Substance: PREDNISONE
  18. ACETAMINOPHEN [Concomitant]
     Active Substance: ACETAMINOPHEN
  19. CODEINE [Concomitant]
     Active Substance: CODEINE
  20. MEDROL [Concomitant]
     Active Substance: METHYLPREDNISOLONE
  21. ERYTHROMYCIN [Concomitant]
     Active Substance: ERYTHROMYCIN
     Dosage: UNK
  22. OMEPRAZOLE [Concomitant]
     Active Substance: OMEPRAZOLE
     Dosage: UNK
  23. IBUPROFEN [Concomitant]
     Active Substance: IBUPROFEN
     Dosage: 200 MILLIGRAM
     Route: 048
  24. LIDOCAINE [Concomitant]
     Active Substance: LIDOCAINE
     Dosage: UNK, QID
     Route: 061
     Dates: start: 20230627
  25. VITAMINS [Concomitant]
     Active Substance: VITAMINS
     Dosage: 1 DOSAGE FORM
     Route: 048
     Dates: start: 20210325
  26. RIZATRIPTAN [Concomitant]
     Active Substance: RIZATRIPTAN
     Indication: Migraine
     Dosage: 10 MILLIGRAM
     Route: 048
     Dates: start: 20230612, end: 20240610
  27. TIZANIDINE [Concomitant]
     Active Substance: TIZANIDINE
     Indication: Muscle spasms
     Dosage: 2 MILLIGRAM, EVERY 8-12 HOURS AS NEEDED
     Route: 048
     Dates: start: 20230625
  28. FLUTICASONE [Concomitant]
     Active Substance: FLUTICASONE
     Dosage: 50 MICROGRAM
     Route: 045
  29. CLARITIN [Concomitant]
     Active Substance: LORATADINE
     Dosage: UNK
     Route: 048

REACTIONS (23)
  - Physical disability [Not Recovered/Not Resolved]
  - Disability [Not Recovered/Not Resolved]
  - Deafness neurosensory [Not Recovered/Not Resolved]
  - Dermoid cyst [Unknown]
  - Basal cell carcinoma [Unknown]
  - Concomitant disease aggravated [Unknown]
  - Quality of life decreased [Not Recovered/Not Resolved]
  - Discomfort [Unknown]
  - Pain [Not Recovered/Not Resolved]
  - Anxiety [Not Recovered/Not Resolved]
  - Injury [Not Recovered/Not Resolved]
  - Emotional distress [Not Recovered/Not Resolved]
  - Abdominal discomfort [Unknown]
  - Neoplasm skin [Unknown]
  - Musculoskeletal chest pain [Unknown]
  - Obesity [Unknown]
  - Haemorrhoids [Unknown]
  - Joint dislocation [Unknown]
  - Abdominal pain [Unknown]
  - Diverticulum intestinal [Unknown]
  - Pleuritic pain [Unknown]
  - Blood pressure systolic increased [Unknown]
  - Headache [Not Recovered/Not Resolved]

NARRATIVE: CASE EVENT DATE: 20210101
